FAERS Safety Report 18514789 (Version 1)
Quarter: 2020Q4

REPORT INFORMATION
  Report Type: Spontaneous
  Country: US (occurrence: US)
  Receive Date: 20201118
  Receipt Date: 20201118
  Transmission Date: 20210114
  Serious: No
  Sender: FDA-Public Use
  Company Number: US-UCBSA-2020017852

PATIENT
  Sex: Male

DRUGS (1)
  1. VIMPAT [Suspect]
     Active Substance: LACOSAMIDE
     Indication: EPILEPSY
     Dosage: 200 MG MORNING, 300 MG AT NIGHT
     Route: 048
     Dates: start: 2009, end: 20190129

REACTIONS (4)
  - Off label use [Unknown]
  - Therapy cessation [Unknown]
  - Overdose [Unknown]
  - Product availability issue [Unknown]
